FAERS Safety Report 7628257-4 (Version None)
Quarter: 2011Q3

REPORT INFORMATION
  Report Type: 
  Country: None (occurrence: None)
  Receive Date: 20110722
  Receipt Date: 20110125
  Transmission Date: 20111222
  Serious: No
  Sender: FDA-Public Use
  Company Number: US-BAYER-2011-011822

PATIENT
  Age: 30 Year
  Sex: Female
  Weight: 58.957 kg

DRUGS (1)
  1. BETASERON [Suspect]
     Indication: MULTIPLE SCLEROSIS
     Dosage: 0.3 MG, QOD
     Route: 058
     Dates: start: 20081020

REACTIONS (4)
  - INJECTION SITE PAIN [None]
  - INJECTION SITE MASS [None]
  - INJECTION SITE HAEMATOMA [None]
  - PAIN [None]
